FAERS Safety Report 4543914-4 (Version None)
Quarter: 2005Q1

REPORT INFORMATION
  Report Type: 
  Country: None (occurrence: None)
  Receive Date: 20050103
  Receipt Date: 20030714
  Transmission Date: 20050727
  Serious: Yes (Hospitalization)
  Sender: FDA-Public Use
  Company Number: GXKR2003GB00474

PATIENT
  Age: 71 Year
  Sex: Female

DRUGS (18)
  1. ATENOLOL [Suspect]
     Dosage: SEE IMAGE
     Dates: start: 20030301, end: 20030618
  2. ATENOLOL [Suspect]
     Dosage: SEE IMAGE
     Dates: end: 20030618
  3. TRIMETHOPRIM [Suspect]
     Dosage: ORAL
     Route: 048
     Dates: start: 20030308, end: 20030318
  4. CO-TRIMOXAZOLE (CO-TRIMOXAZOLE) [Suspect]
     Indication: INFECTION
     Dosage: 960 MG/DAY, ORAL
     Route: 048
     Dates: start: 20030614, end: 20030619
  5. ROFECOXIB [Suspect]
     Dosage: 25 MG, QD
     Dates: start: 20030301, end: 20030618
  6. ACETYLSALICYLIC ACID (ASPIRIN) (ACETYLSALICYLIC ACID) [Concomitant]
  7. NITRAZEPAM [Concomitant]
  8. GABAPENTIN [Concomitant]
  9. LANSOPRAZOLE [Concomitant]
  10. ALENDRONATE SODIUM [Concomitant]
  11. SENNA (SENNA, SENNA ALEXANDRINA) [Concomitant]
  12. CO-CODAMOL (CODEINE PHOSPHATE, PARACETAMOL) [Concomitant]
  13. LACTULOSE [Concomitant]
  14. VITAMIN B COMPLEX (CALCIUM PANTOTHENATE, NICOTINAMIDE, PYRIDOXINE HYDR [Concomitant]
  15. RANITIDINE [Concomitant]
  16. FOLIC ACID [Concomitant]
  17. VISCOTEARS (CARBOMER) [Concomitant]
  18. SIMVASTATIN [Concomitant]

REACTIONS (6)
  - BLOOD CREATININE INCREASED [None]
  - BLOOD PRESSURE DECREASED [None]
  - BLOOD UREA INCREASED [None]
  - CIRCULATORY COLLAPSE [None]
  - HEART RATE DECREASED [None]
  - HYPERKALAEMIA [None]
